FAERS Safety Report 17834399 (Version 5)
Quarter: 2020Q4

REPORT INFORMATION
  Report Type: Spontaneous
  Country: BR (occurrence: BR)
  Receive Date: 20200528
  Receipt Date: 20201006
  Transmission Date: 20210113
  Serious: Yes (Other)
  Sender: FDA-Public Use
  Company Number: BR-GLAXOSMITHKLINE-BR2020AMR088517

PATIENT
  Sex: Female
  Weight: 76 kg

DRUGS (6)
  1. WELLBUTRIN XL [Suspect]
     Active Substance: BUPROPION HYDROCHLORIDE
     Indication: DEPRESSION
     Dosage: UNK
  2. RELVAR ELLIPTA [Suspect]
     Active Substance: FLUTICASONE FUROATE\VILANTEROL TRIFENATATE
     Indication: ASTHMA
     Dosage: 1 PUFF(S), QD, 30 DOSES, 200/25 MCG
     Route: 055
  3. AAS [Concomitant]
     Active Substance: ASPIRIN
     Indication: PRODUCT USED FOR UNKNOWN INDICATION
     Dosage: UNK
     Dates: start: 2018
  4. BUDESONIDE. [Suspect]
     Active Substance: BUDESONIDE
     Indication: ASTHMA
     Dosage: UNK
  5. ROSUVASTATIN. [Concomitant]
     Active Substance: ROSUVASTATIN
     Indication: PRODUCT USED FOR UNKNOWN INDICATION
     Dosage: UNK
     Dates: start: 2018
  6. RELVAR ELLIPTA [Suspect]
     Active Substance: FLUTICASONE FUROATE\VILANTEROL TRIFENATATE
     Indication: PROPHYLAXIS

REACTIONS (22)
  - Weight increased [Unknown]
  - Depression [Recovered/Resolved]
  - Myocardial infarction [Unknown]
  - Chest discomfort [Recovered/Resolved]
  - Agitation [Recovered/Resolved]
  - Product dose omission issue [Unknown]
  - Product complaint [Unknown]
  - Drug dependence [Unknown]
  - Malaise [Recovered/Resolved]
  - Incorrect product administration duration [Unknown]
  - Arrhythmia [Unknown]
  - Chest pain [Unknown]
  - Treatment noncompliance [Unknown]
  - Insomnia [Unknown]
  - Anxiety [Recovered/Resolved]
  - Adverse drug reaction [Unknown]
  - Drug ineffective [Unknown]
  - Dyspnoea [Recovered/Resolved]
  - Back pain [Unknown]
  - Abdominal pain upper [Unknown]
  - Apathy [Unknown]
  - Off label use [Unknown]
